FAERS Safety Report 24178095 (Version 1)
Quarter: 2024Q3

REPORT INFORMATION
  Report Type: Other
  Country: US (occurrence: US)
  Receive Date: 20240806
  Receipt Date: 20240806
  Transmission Date: 20241017
  Serious: Yes (Hospitalization, Other)
  Sender: GUARDIAN PHARMACEUTICALS
  Company Number: US-Guardian Drug Company-2160047

PATIENT
  Age: 38 Year
  Sex: Male

DRUGS (2)
  1. CHILDRENS IBUPROFEN [Suspect]
     Active Substance: IBUPROFEN
     Indication: Pain management
     Route: 065
  2. ACETAMINOPHEN [Suspect]
     Active Substance: ACETAMINOPHEN
     Route: 065

REACTIONS (3)
  - Liver injury [Recovering/Resolving]
  - Toxicity to various agents [Recovering/Resolving]
  - Renal tubular necrosis [Recovering/Resolving]
